FAERS Safety Report 9512044 (Version 1)
Quarter: 2013Q3

REPORT INFORMATION
  Report Type: Spontaneous
  Country: CN (occurrence: CN)
  Receive Date: 20130910
  Receipt Date: 20130910
  Transmission Date: 20140515
  Serious: Yes (Other)
  Sender: FDA-Public Use
  Company Number: CN-PFIZER INC-2013259896

PATIENT
  Age: 16 Year
  Sex: Female
  Weight: 45 kg

DRUGS (3)
  1. ZELDOX [Suspect]
     Indication: MAJOR DEPRESSION
     Dosage: UNK
     Route: 048
     Dates: start: 20111016
  2. ZELDOX [Suspect]
     Dosage: 160 MG, DAILY
     Route: 048
     Dates: start: 20120819, end: 20120829
  3. ZELDOX [Suspect]
     Dosage: 80 MG, 2X/DAY
     Route: 048
     Dates: start: 20120830, end: 20120928

REACTIONS (3)
  - Illusion [Recovering/Resolving]
  - Muscle tone disorder [Recovering/Resolving]
  - Ataxia [Recovering/Resolving]
